FAERS Safety Report 7940140-3 (Version None)
Quarter: 2011Q4

REPORT INFORMATION
  Report Type: 
  Country: None (occurrence: None)
  Receive Date: 20111125
  Receipt Date: 20111114
  Transmission Date: 20120403
  Serious: Yes (Hospitalization, Other)
  Sender: FDA-Public Use
  Company Number: US-ELI_LILLY_AND_COMPANY-US200908006715

PATIENT
  Sex: Female

DRUGS (20)
  1. ATENOLOL [Concomitant]
  2. FORTEO [Suspect]
     Indication: OSTEOPOROSIS
     Dosage: 20 UG, DAILY (1/D)
     Dates: start: 20090801
  3. METFORMIN [Concomitant]
  4. HYDROCHLOROTHIAZIDE [Concomitant]
  5. ASPIRIN [Concomitant]
  6. SIMVASTATIN [Concomitant]
  7. FORTEO [Suspect]
     Dosage: 20 UG, DAILY (1/D)
     Dates: start: 20110201
  8. FORTEO [Suspect]
     Dosage: 20 UG, QD
  9. GABAPENTIN [Concomitant]
  10. CALCIUM [Concomitant]
  11. POTASSIUM CHLORIDE [Concomitant]
  12. METOPROLOL TARTRATE [Concomitant]
  13. LEVOTHROID [Concomitant]
  14. NORVASC [Concomitant]
  15. ZELAPAR [Concomitant]
  16. PREVACID [Concomitant]
  17. DIGOXIN [Concomitant]
  18. FORTEO [Suspect]
     Dosage: 20 UG, DAILY (1/D)
     Dates: end: 20100922
  19. FORTEO [Suspect]
     Dosage: 20 UG, QD
     Dates: start: 20110801
  20. VITAMIN B15 [Concomitant]

REACTIONS (26)
  - FALL [None]
  - CONTUSION [None]
  - UPPER LIMB FRACTURE [None]
  - MOUTH INJURY [None]
  - FATIGUE [None]
  - PAIN [None]
  - NAUSEA [None]
  - ATRIAL FIBRILLATION [None]
  - BLOOD POTASSIUM DECREASED [None]
  - BLOOD ELECTROLYTES DECREASED [None]
  - PRODUCT TASTE ABNORMAL [None]
  - CARDIAC FAILURE CONGESTIVE [None]
  - INFECTION [None]
  - HEART VALVE INCOMPETENCE [None]
  - RIB FRACTURE [None]
  - WALKING AID USER [None]
  - BLOOD CALCIUM INCREASED [None]
  - WEIGHT DECREASED [None]
  - WRIST FRACTURE [None]
  - TOOTH FRACTURE [None]
  - INSOMNIA [None]
  - BONE PAIN [None]
  - PAIN IN EXTREMITY [None]
  - HAND FRACTURE [None]
  - DRY MOUTH [None]
  - MUSCULOSKELETAL DISCOMFORT [None]
